FAERS Safety Report 9305881 (Version 2)
Quarter: 2013Q2

REPORT INFORMATION
  Report Type: Spontaneous
  Country: AU (occurrence: AU)
  Receive Date: 20130523
  Receipt Date: 20130621
  Transmission Date: 20140414
  Serious: Yes (Other)
  Sender: FDA-Public Use
  Company Number: AU-ROCHE-1228007

PATIENT
  Age: 61 Year
  Sex: Female

DRUGS (4)
  1. PERJETA [Suspect]
     Indication: BREAST CANCER
     Route: 065
     Dates: start: 201210, end: 201301
  2. HERCEPTIN [Suspect]
     Indication: BREAST CANCER
     Route: 065
     Dates: start: 200710
  3. HERCEPTIN [Suspect]
     Route: 065
     Dates: start: 200912, end: 201008
  4. HERCEPTIN [Suspect]
     Route: 065
     Dates: start: 201201

REACTIONS (1)
  - Disease progression [Unknown]
